FAERS Safety Report 15291739 (Version 4)
Quarter: 2018Q4

REPORT INFORMATION
  Report Type: Report from Study
  Country: US (occurrence: US)
  Receive Date: 20180817
  Receipt Date: 20181214
  Transmission Date: 20190204
  Serious: Yes (Other)
  Sender: FDA-Public Use
  Company Number: US-JAZZ-2018-US-003758

PATIENT
  Sex: Female

DRUGS (10)
  1. ASCORBIC ACID. [Concomitant]
     Active Substance: ASCORBIC ACID
  2. NITROFURANTOIN. [Concomitant]
     Active Substance: NITROFURANTOIN
  3. SUMATRIPTAN. [Concomitant]
     Active Substance: SUMATRIPTAN
  4. TOPIRAMATE. [Concomitant]
     Active Substance: TOPIRAMATE
  5. METADATE CD [Concomitant]
     Active Substance: METHYLPHENIDATE HYDROCHLORIDE
  6. FLUCONAZOLE. [Concomitant]
     Active Substance: FLUCONAZOLE
  7. LEXAPRO [Concomitant]
     Active Substance: ESCITALOPRAM OXALATE
  8. XYREM [Suspect]
     Active Substance: SODIUM OXYBATE
     Indication: NARCOLEPSY
     Dosage: 2.25 G, BID
     Route: 048
     Dates: start: 201801
  9. DOXEPIN [Concomitant]
     Active Substance: DOXEPIN
  10. ALEVE [Concomitant]
     Active Substance: NAPROXEN SODIUM

REACTIONS (2)
  - Ovarian cyst [Unknown]
  - Endometriosis [Not Recovered/Not Resolved]

NARRATIVE: CASE EVENT DATE: 2018
